FAERS Safety Report 5919599-9 (Version None)
Quarter: 2008Q4

REPORT INFORMATION
  Report Type: 
  Country: None (occurrence: None)
  Receive Date: 20081015
  Receipt Date: 20080516
  Transmission Date: 20090506
  Serious: No
  Sender: FDA-Public Use
  Company Number: US-BRISTOL-MYERS SQUIBB COMPANY-14193510

PATIENT
  Age: 34 Year
  Sex: Female
  Weight: 44 kg

DRUGS (1)
  1. KENALOG-40 [Suspect]

REACTIONS (5)
  - DRY MOUTH [None]
  - INJECTION SITE DISCOLOURATION [None]
  - INJECTION SITE REACTION [None]
  - MENSTRUATION IRREGULAR [None]
  - POLLAKIURIA [None]
